FAERS Safety Report 15663407 (Version 1)
Quarter: 2018Q4

REPORT INFORMATION
  Report Type: Spontaneous
  Country: US (occurrence: US)
  Receive Date: 20181128
  Receipt Date: 20181128
  Transmission Date: 20190205
  Serious: Yes (Other)
  Sender: FDA-Public Use
  Company Number: US-ROCHE-2219995

PATIENT
  Sex: Male

DRUGS (5)
  1. MAVIRET [Suspect]
     Active Substance: GLECAPREVIR\PIBRENTASVIR
     Indication: HEPATITIS VIRAL
     Dosage: 100/40 MG (3 TA-  2)
     Route: 048
     Dates: start: 20180918
  2. GLIPIZIDE. [Concomitant]
     Active Substance: GLIPIZIDE
  3. XELODA [Suspect]
     Active Substance: CAPECITABINE
     Indication: COLON CANCER
     Route: 065
  4. IBUPROFEN. [Concomitant]
     Active Substance: IBUPROFEN
  5. LISINOPRIL. [Concomitant]
     Active Substance: LISINOPRIL

REACTIONS (5)
  - Fatigue [Unknown]
  - Nausea [Unknown]
  - Tooth dislocation [Unknown]
  - Diarrhoea [Unknown]
  - Colon cancer [Unknown]
